FAERS Safety Report 9934566 (Version 4)
Quarter: 2014Q2

REPORT INFORMATION
  Report Type: Report from Study
  Country: IL (occurrence: IL)
  Receive Date: 20140228
  Receipt Date: 20140429
  Transmission Date: 20141212
  Serious: No
  Sender: FDA-Public Use
  Company Number: PHHY2013IL029163

PATIENT
  Age: 68 Year
  Sex: Female
  Weight: 50.5 kg

DRUGS (3)
  1. TASIGNA [Suspect]
     Indication: CHRONIC MYELOID LEUKAEMIA
     Dosage: 300 MG, BID
     Route: 048
     Dates: start: 20111212
  2. TASIGNA [Suspect]
     Dosage: 400 MG, UNK
     Route: 048
  3. TASIGNA [Suspect]
     Dosage: 300 MG, UNK
     Route: 048

REACTIONS (40)
  - Sleep disorder [Not Recovered/Not Resolved]
  - Frequent bowel movements [Unknown]
  - Aphagia [Unknown]
  - Panic attack [Recovered/Resolved]
  - Heart rate increased [Recovered/Resolved]
  - Asthenia [Recovered/Resolved]
  - Dizziness [Recovered/Resolved]
  - Hepatic function abnormal [Not Recovered/Not Resolved]
  - Disturbance in attention [Recovered/Resolved]
  - Malaise [Recovered/Resolved]
  - Bone pain [Not Recovered/Not Resolved]
  - Pollakiuria [Not Recovered/Not Resolved]
  - Body temperature increased [Not Recovered/Not Resolved]
  - Abdominal pain [Not Recovered/Not Resolved]
  - Dyspepsia [Unknown]
  - Nausea [Not Recovered/Not Resolved]
  - Decreased appetite [Not Recovered/Not Resolved]
  - Depression [Recovering/Resolving]
  - Eye pruritus [Not Recovered/Not Resolved]
  - Pruritus [Not Recovered/Not Resolved]
  - Dry mouth [Unknown]
  - Mouth ulceration [Unknown]
  - Anxiety [Recovering/Resolving]
  - Stress [Recovering/Resolving]
  - Muscle spasms [Not Recovered/Not Resolved]
  - Feeling cold [Unknown]
  - Influenza [Unknown]
  - Back pain [Unknown]
  - Pain in extremity [Unknown]
  - Skin lesion [Not Recovered/Not Resolved]
  - Hair texture abnormal [Not Recovered/Not Resolved]
  - Blood glucose increased [Recovering/Resolving]
  - Blood cholesterol increased [Unknown]
  - Increased appetite [Unknown]
  - Weight increased [Unknown]
  - Arthralgia [Not Recovered/Not Resolved]
  - Dry eye [Not Recovered/Not Resolved]
  - Chills [Unknown]
  - Vomiting [Unknown]
  - Blood bilirubin increased [Unknown]
